FAERS Safety Report 18935032 (Version 1)
Quarter: 2021Q1

REPORT INFORMATION
  Report Type: Spontaneous
  Country: CA (occurrence: CA)
  Receive Date: 20210224
  Receipt Date: 20210224
  Transmission Date: 20210420
  Serious: Yes (Other)
  Sender: FDA-Public Use
  Company Number: CA-PFIZER INC-2021171717

PATIENT
  Age: 62 Year
  Sex: Male
  Weight: 78 kg

DRUGS (6)
  1. METHOXSALEN. [Concomitant]
     Active Substance: METHOXSALEN
     Dosage: 40 MG, 2 EVERY 1 WEEKS
     Route: 048
  2. METHOTREXATE SODIUM. [Suspect]
     Active Substance: METHOTREXATE SODIUM
     Indication: CUTANEOUS T-CELL LYMPHOMA
     Dosage: 30 MG, WEEKLY
     Route: 048
  3. METHOXSALEN. [Concomitant]
     Active Substance: METHOXSALEN
     Dosage: UNK
     Route: 065
  4. INTRON A [Suspect]
     Active Substance: INTERFERON ALFA-2B
     Indication: CUTANEOUS T-CELL LYMPHOMA
     Dosage: UNK
     Route: 058
  5. MECHLORETHAMINE HYDROCHLORIDE [Suspect]
     Active Substance: MECHLORETHAMINE HYDROCHLORIDE
     Indication: CUTANEOUS T-CELL LYMPHOMA
     Route: 061
  6. ALITRETINOIN [Concomitant]
     Active Substance: ALITRETINOIN
     Indication: CUTANEOUS T-CELL LYMPHOMA
     Dosage: 30 MG, 1X/DAY
     Route: 048

REACTIONS (2)
  - Pancreatic carcinoma [Unknown]
  - Off label use [Unknown]
